FAERS Safety Report 6818751-8 (Version None)
Quarter: 2010Q2

REPORT INFORMATION
  Report Type: 
  Country: None (occurrence: None)
  Receive Date: 20100630
  Receipt Date: 20100614
  Transmission Date: 20101027
  Serious: Yes (Other)
  Sender: FDA-Public Use
  Company Number: CV20100292

PATIENT
  Age: 57 Year
  Sex: Male

DRUGS (5)
  1. SODIUM CHLORIDE [Suspect]
     Indication: DRUG USE FOR UNKNOWN INDICATION
     Dosage: INTRAVENOUS
     Route: 042
     Dates: start: 20100525, end: 20100525
  2. GADOVIST (GADOBUTROL) (GADOBUTROL) 94537E [Concomitant]
  3. ASPIRIN [Concomitant]
  4. RAMIPRIL [Concomitant]
  5. SIMVASTATIN [Concomitant]

REACTIONS (8)
  - ASTHENIA [None]
  - ERYTHEMA [None]
  - EYELID OEDEMA [None]
  - HYPOAESTHESIA FACIAL [None]
  - OEDEMA PERIPHERAL [None]
  - PALLOR [None]
  - SWELLING FACE [None]
  - URTICARIA [None]
